FAERS Safety Report 4284148-0 (Version None)
Quarter: 2004Q1

REPORT INFORMATION
  Report Type: 
  Country: None (occurrence: None)
  Receive Date: 20040203
  Receipt Date: 20031020
  Transmission Date: 20041129
  Serious: Yes (Hospitalization)
  Sender: FDA-Public Use
  Company Number: FR-GLAXOSMITHKLINE-B0312701A

PATIENT
  Age: 42 Year
  Sex: Male

DRUGS (4)
  1. DEROXAT [Suspect]
     Indication: MAJOR DEPRESSION
     Dosage: 40MG PER DAY
     Route: 048
     Dates: start: 20030101, end: 20030101
  2. RISPERDAL [Suspect]
     Indication: ILL-DEFINED DISORDER
     Route: 048
     Dates: end: 20030101
  3. ANXIOLYTIC [Concomitant]
     Route: 065
  4. SEDATIVE(UNKNOWN) [Concomitant]
     Route: 065

REACTIONS (2)
  - RESTLESS LEGS SYNDROME [None]
  - RESTLESSNESS [None]
